FAERS Safety Report 11410559 (Version 2)
Quarter: 2015Q3

REPORT INFORMATION
  Report Type: Spontaneous
  Country: US (occurrence: US)
  Receive Date: 20150824
  Receipt Date: 20150929
  Transmission Date: 20151125
  Serious: No
  Sender: FDA-Public Use
  Company Number: PHEH2015US015720

PATIENT
  Sex: Female

DRUGS (3)
  1. VIVELLE DOT [Suspect]
     Active Substance: ESTRADIOL
     Indication: PRODUCT USED FOR UNKNOWN INDICATION
     Dosage: 0.1 MG, BID
     Route: 062
  2. CALCIUM [Concomitant]
     Active Substance: CALCIUM
     Indication: PRODUCT USED FOR UNKNOWN INDICATION
     Route: 065
  3. VITAMIN D [Concomitant]
     Active Substance: CHOLECALCIFEROL
     Indication: PRODUCT USED FOR UNKNOWN INDICATION
     Route: 065

REACTIONS (6)
  - Hypersensitivity [Unknown]
  - Laceration [Unknown]
  - Product adhesion issue [Unknown]
  - Skin reaction [Unknown]
  - Application site irritation [Unknown]
  - Application site erythema [Unknown]

NARRATIVE: CASE EVENT DATE: 2009
